FAERS Safety Report 11360622 (Version 1)
Quarter: 2015Q3

REPORT INFORMATION
  Report Type: Spontaneous
  Country: GB (occurrence: GB)
  Receive Date: 20150810
  Receipt Date: 20150810
  Transmission Date: 20151125
  Serious: Yes (Hospitalization, Disabling, Other)
  Sender: FDA-Public Use
  Company Number: GB-JNJFOC-20150721704

PATIENT
  Age: 15 Year
  Sex: Female
  Weight: 70.3 kg

DRUGS (4)
  1. NORETHINDRONE AND ETHINYL ESTRADIOL [Suspect]
     Active Substance: ETHINYL ESTRADIOL\NORETHINDRONE
     Indication: MENORRHAGIA
     Dosage: DOSE NO. 250
     Route: 048
     Dates: start: 20140101, end: 20150623
  2. BREVINOR [Suspect]
     Active Substance: ETHINYL ESTRADIOL\NORETHINDRONE
     Indication: MENORRHAGIA
     Dosage: DOSE 500 (UNITS NOT SPECIFIED)
     Route: 065
     Dates: start: 20150624, end: 20150708
  3. LORATIDINE [Concomitant]
     Active Substance: LORATADINE
     Route: 065
  4. CETIRIZINE [Concomitant]
     Active Substance: CETIRIZINE HYDROCHLORIDE
     Route: 065

REACTIONS (5)
  - Intracranial venous sinus thrombosis [Recovering/Resolving]
  - Coma scale abnormal [Unknown]
  - Vomiting [Unknown]
  - Amnesia [Unknown]
  - Malaise [Unknown]
